FAERS Safety Report 8236288-9 (Version None)
Quarter: 2012Q1

REPORT INFORMATION
  Report Type: 
  Country: None (occurrence: None)
  Receive Date: 20120327
  Receipt Date: 20120315
  Transmission Date: 20120608
  Serious: Yes (Other)
  Sender: FDA-Public Use
  Company Number: US-BAYER-2012-021903

PATIENT
  Age: 28 Year
  Sex: Female

DRUGS (1)
  1. MIRENA [Suspect]
     Dosage: 20 MCG/24HR, CONT
     Route: 015
     Dates: start: 20100801

REACTIONS (8)
  - ABDOMINAL PAIN [None]
  - MENSTRUATION IRREGULAR [None]
  - MUSCLE TIGHTNESS [None]
  - DEVICE DISLOCATION [None]
  - SPEECH DISORDER [None]
  - GENITAL HAEMORRHAGE [None]
  - MUSCLE TWITCHING [None]
  - GENITAL PAIN [None]
